FAERS Safety Report 8422038-X (Version None)
Quarter: 2012Q2

REPORT INFORMATION
  Report Type: 
  Country: None (occurrence: None)
  Receive Date: 20120608
  Receipt Date: 20120531
  Transmission Date: 20120825
  Serious: Yes (Other)
  Sender: FDA-Public Use
  Company Number: US-ROCHE-1053142

PATIENT
  Sex: Male
  Weight: 104.42 kg

DRUGS (11)
  1. XELODA [Suspect]
     Indication: PRODUCT USED FOR UNKNOWN INDICATION
     Route: 048
     Dates: start: 20111018
  2. ADVAIR DISKUS 100/50 [Concomitant]
     Dosage: 500-50 MCG MISC INHALE 2 PUFFS DAILY
  3. AVAPRO [Concomitant]
     Route: 048
  4. WARFARIN SODIUM [Concomitant]
     Route: 048
  5. CEPHALEXIN [Concomitant]
     Route: 048
  6. ASCORBIC ACID [Concomitant]
     Route: 048
  7. HYDROCHLOROTHIAZDE TAB [Concomitant]
     Route: 048
  8. SYMBICORT [Concomitant]
     Dosage: 160-4.5 MCG INHALATION AEROSOL, INHALE 2 PUFFS
  9. FERROUS SULFATE TAB [Concomitant]
     Route: 048
  10. GABAPENTIN [Concomitant]
     Route: 048
  11. POTASSIUM CHLORIDE [Concomitant]

REACTIONS (2)
  - DRUG INEFFECTIVE [None]
  - BLOOD DISORDER [None]
